FAERS Safety Report 19658981 (Version 1)
Quarter: 2021Q3

REPORT INFORMATION
  Report Type: Spontaneous
  Country: US (occurrence: US)
  Receive Date: 20210805
  Receipt Date: 20210805
  Transmission Date: 20211014
  Serious: No
  Sender: FDA-Public Use
  Company Number: US-TEVA-2021-US-1937723

PATIENT
  Sex: Female

DRUGS (1)
  1. AUSTEDO [Suspect]
     Active Substance: DEUTETRABENAZINE
     Indication: TARDIVE DYSKINESIA
     Dosage: CURRENTLY ALTERNATING 6 MG TWICE DAILY DOSE WITH 9 MG TWICE DAILY DOSE EVERY OTHER DAY
     Route: 065
     Dates: start: 20210612

REACTIONS (1)
  - Drug ineffective [Unknown]
